FAERS Safety Report 7211814-7 (Version None)
Quarter: 2011Q1

REPORT INFORMATION
  Report Type: 
  Country: None (occurrence: None)
  Receive Date: 20110105
  Receipt Date: 20101228
  Transmission Date: 20110831
  Serious: Yes (Hospitalization)
  Sender: FDA-Public Use
  Company Number: US-GILEAD-2010-0034684

PATIENT
  Sex: Male

DRUGS (1)
  1. LETAIRIS [Suspect]
     Indication: PULMONARY ARTERIAL HYPERTENSION
     Route: 048
     Dates: start: 20100913

REACTIONS (5)
  - HYPOXIC-ISCHAEMIC ENCEPHALOPATHY [None]
  - VENTRICULAR TACHYCARDIA [None]
  - CORONARY ARTERY DISEASE [None]
  - MEDIASTINITIS [None]
  - CARDIAC ARREST [None]
